FAERS Safety Report 21400935 (Version 1)
Quarter: 2022Q4

REPORT INFORMATION
  Report Type: Spontaneous
  Country: DE (occurrence: DE)
  Receive Date: 20221003
  Receipt Date: 20221003
  Transmission Date: 20230113
  Serious: Yes (Hospitalization, Other)
  Sender: FDA-Public Use
  Company Number: DE-ALKEM LABORATORIES LIMITED-DE-ALKEM-2022-10452

PATIENT
  Sex: Male
  Weight: 75 kg

DRUGS (3)
  1. FINGOLIMOD [Suspect]
     Active Substance: FINGOLIMOD
     Indication: Multiple sclerosis
     Dosage: 0.5 MILLIGRAM, (CAPSULE, HARD)
     Route: 048
     Dates: start: 20180502
  2. CHOLECALCIFEROL [Concomitant]
     Active Substance: CHOLECALCIFEROL
     Indication: Vitamin D deficiency
     Dosage: 20000 IU INTERNATIONAL UNIT(S), ONCE WEEKLY ( EVERY 1 WEEK)
     Route: 065
     Dates: start: 20170509
  3. CHOLECALCIFEROL [Concomitant]
     Active Substance: CHOLECALCIFEROL
     Indication: Vitamin D deficiency
     Dosage: 20000 IU INTERNATIONAL UNIT(S), ONCE WEEKLY
     Route: 065
     Dates: start: 20170509

REACTIONS (12)
  - Balance disorder [Unknown]
  - Coordination abnormal [Unknown]
  - COVID-19 [Recovered/Resolved]
  - Dizziness [Unknown]
  - Basal cell carcinoma [Unknown]
  - Nervous system disorder [Not Recovered/Not Resolved]
  - Motor dysfunction [Not Recovered/Not Resolved]
  - Movement disorder [Not Recovered/Not Resolved]
  - Sensory disturbance [Not Recovered/Not Resolved]
  - Gamma-glutamyltransferase increased [Not Recovered/Not Resolved]
  - Muscle disorder [Not Recovered/Not Resolved]
  - Visual acuity reduced [Recovered/Resolved]

NARRATIVE: CASE EVENT DATE: 20180806
